FAERS Safety Report 21553246 (Version 1)
Quarter: 2022Q4

REPORT INFORMATION
  Report Type: Spontaneous
  Country: US (occurrence: US)
  Receive Date: 20221104
  Receipt Date: 20221104
  Transmission Date: 20230113
  Serious: No
  Sender: FDA-Public Use
  Company Number: US-REDHILL-2022RDH00053

PATIENT
  Age: 75 Year
  Sex: Male
  Weight: 83.9 kg

DRUGS (5)
  1. MOVANTIK [Suspect]
     Active Substance: NALOXEGOL OXALATE
     Indication: Constipation
     Dosage: 25 MG, 1X/DAY IN THE EVENINGS
     Route: 048
     Dates: start: 2020, end: 2022
  2. MOVANTIK [Suspect]
     Active Substance: NALOXEGOL OXALATE
     Dosage: 25 MG, 1X/DAY IN THE MORNINGS
     Route: 048
     Dates: start: 2022
  3. SENNA PLUS [Suspect]
     Active Substance: DOCUSATE SODIUM\SENNOSIDES\SENNOSIDES A AND B
     Indication: Product used for unknown indication
     Dosage: 2 DOSAGE FORM, 2X/DAY
     Dates: end: 2022
  4. HYSINGLA ER [Concomitant]
     Active Substance: HYDROCODONE BITARTRATE
     Indication: Product used for unknown indication
     Dosage: UNK, 1X/DAY
     Dates: start: 2020
  5. PERI-COLACE STOOL SOFTENER [Concomitant]
     Indication: Product used for unknown indication
     Dosage: UNK, 2X/DAY

REACTIONS (3)
  - Gastrointestinal tract mucosal pigmentation [Unknown]
  - Stool DNA test positive [Not Recovered/Not Resolved]
  - Product administration error [Recovered/Resolved]

NARRATIVE: CASE EVENT DATE: 20200101
